FAERS Safety Report 18564983 (Version 2)
Quarter: 2020Q4

REPORT INFORMATION
  Report Type: Spontaneous
  Country: NL (occurrence: NL)
  Receive Date: 20201201
  Receipt Date: 20201218
  Transmission Date: 20210114
  Serious: Yes (Death, Life-Threatening, Hospitalization, Other)
  Sender: FDA-Public Use
  Company Number: NL-PFIZER INC-2020470621

PATIENT
  Age: 77 Year
  Sex: Male
  Weight: 109 kg

DRUGS (7)
  1. IBRUTINIB [Suspect]
     Active Substance: IBRUTINIB
     Indication: B-CELL LYMPHOMA
     Dosage: UNK, DAILY
     Route: 048
     Dates: start: 20200706, end: 20201014
  2. METOPROLOL. [Concomitant]
     Active Substance: METOPROLOL
     Indication: ATRIAL FIBRILLATION
     Dosage: 25 MG, 1X/DAY
     Route: 048
     Dates: start: 20190328
  3. RITUXIMAB. [Suspect]
     Active Substance: RITUXIMAB
     Indication: B-CELL LYMPHOMA
     Dosage: 900 MG/M2, EVERY 8 WEEKS
     Route: 042
     Dates: start: 20200706, end: 20201014
  4. ALLOPURINOL. [Concomitant]
     Active Substance: ALLOPURINOL
     Indication: GOUT
     Dosage: 200 MG, 1X/DAY
     Route: 048
     Dates: start: 20190411
  5. APIXABAN [Concomitant]
     Active Substance: APIXABAN
     Indication: ATRIAL FIBRILLATION
     Dosage: 5 MG, 2X/DAY
     Route: 048
     Dates: start: 20190328
  6. PROPRANOLOL [Concomitant]
     Active Substance: PROPRANOLOL HYDROCHLORIDE
     Indication: ATRIAL FIBRILLATION
     Dosage: 60 MG, 1X/DAY
     Route: 048
     Dates: start: 20190722
  7. SOLIFENACIN [Concomitant]
     Active Substance: SOLIFENACIN
     Indication: URINARY RETENTION
     Dosage: 5 MG, 1X/DAY
     Route: 048
     Dates: start: 20190328

REACTIONS (4)
  - SARS-CoV-2 test positive [Fatal]
  - Diarrhoea [Recovered/Resolved]
  - Pneumatosis intestinalis [Not Recovered/Not Resolved]
  - Pneumatosis [Unknown]

NARRATIVE: CASE EVENT DATE: 20201014
